FAERS Safety Report 11881003 (Version 1)
Quarter: 2015Q4

REPORT INFORMATION
  Report Type: Spontaneous
  Country: US (occurrence: US)
  Receive Date: 20151230
  Receipt Date: 20151230
  Transmission Date: 20160305
  Serious: No
  Sender: FDA-Public Use
  Company Number: US-LUNDBECK-DKLU2007492

PATIENT
  Age: 36 Year
  Sex: Male

DRUGS (1)
  1. SABRIL [Suspect]
     Active Substance: VIGABATRIN
     Indication: PARTIAL SEIZURES
     Route: 048
     Dates: start: 20140123

REACTIONS (3)
  - Epistaxis [Unknown]
  - Nasal congestion [Unknown]
  - Haemoptysis [Unknown]

NARRATIVE: CASE EVENT DATE: 20151001
